FAERS Safety Report 11894564 (Version 1)
Quarter: 2016Q1

REPORT INFORMATION
  Report Type: Spontaneous
  Country: US (occurrence: None)
  Receive Date: 20160106
  Receipt Date: 20160106
  Transmission Date: 20160526
  Serious: Yes (Other)
  Sender: FDA-Public Use
  Company Number: None

PATIENT
  Age: 48 Year
  Sex: Female
  Weight: 76.2 kg

DRUGS (7)
  1. B-COMPLEX VITAMINS [Concomitant]
  2. FERIVA [Suspect]
     Active Substance: ASCORBIC ACID\BIOTIN\CYANOCOBALAMIN\FERROUS BISGLYCINATE\FOLIC ACID
     Indication: ANAEMIA
     Dosage: BY MOUTH
     Dates: start: 20151214, end: 20151214
  3. XANAX [Concomitant]
     Active Substance: ALPRAZOLAM
  4. COQ10 [Concomitant]
     Active Substance: UBIDECARENONE
  5. TENORETIC [Concomitant]
     Active Substance: ATENOLOL\CHLORTHALIDONE
  6. PROZAC [Concomitant]
     Active Substance: FLUOXETINE HYDROCHLORIDE
  7. LIVALO [Concomitant]
     Active Substance: PITAVASTATIN CALCIUM

REACTIONS (7)
  - Drug dispensing error [None]
  - Pruritus generalised [None]
  - Swelling [None]
  - Urticaria [None]
  - Angioedema [None]
  - Eyelid oedema [None]
  - Wrong drug administered [None]

NARRATIVE: CASE EVENT DATE: 20151214
